FAERS Safety Report 12350898 (Version 1)
Quarter: 2016Q2

REPORT INFORMATION
  Report Type: Spontaneous
  Country: US (occurrence: None)
  Receive Date: 20160509
  Receipt Date: 20160509
  Transmission Date: 20160815
  Serious: Yes (Other)
  Sender: FDA-Public Use
  Company Number: None

PATIENT
  Age: 71 Year
  Sex: Female
  Weight: 52.16 kg

DRUGS (1)
  1. NITROFURANTOIN\NITROFURANTOIN MONOHYDRATE [Suspect]
     Active Substance: NITROFURANTOIN\NITROFURANTOIN MONOHYDRATE
     Indication: URINARY TRACT INFECTION
     Route: 048
     Dates: start: 20160314, end: 20160318

REACTIONS (6)
  - Scab [None]
  - Urticaria [None]
  - Dyspnoea [None]
  - Epistaxis [None]
  - Swelling face [None]
  - Headache [None]

NARRATIVE: CASE EVENT DATE: 20160316
